FAERS Safety Report 20975401 (Version 1)
Quarter: 2022Q2

REPORT INFORMATION
  Report Type: Spontaneous
  Country: US (occurrence: None)
  Receive Date: 20220616
  Receipt Date: 20220616
  Transmission Date: 20220721
  Serious: Yes (Life-Threatening, Hospitalization)
  Sender: FDA-Public Use
  Company Number: None

PATIENT
  Age: 82 Year
  Sex: Female
  Weight: 27.44 kg

DRUGS (1)
  1. BEBTELOVIMAB [Suspect]
     Active Substance: BEBTELOVIMAB
     Indication: COVID-19
     Dates: start: 20220616, end: 20220616

REACTIONS (8)
  - Dizziness [None]
  - Nausea [None]
  - Chest pain [None]
  - Loss of consciousness [None]
  - Seizure [None]
  - Agonal respiration [None]
  - Radial pulse abnormal [None]
  - Carotid pulse abnormal [None]

NARRATIVE: CASE EVENT DATE: 20220616
